FAERS Safety Report 8505220-2 (Version None)
Quarter: 2012Q3

REPORT INFORMATION
  Report Type: 
  Country: None (occurrence: None)
  Receive Date: 20120712
  Receipt Date: 20120628
  Transmission Date: 20120928
  Serious: Yes (Death)
  Sender: FDA-Public Use
  Company Number: US-MYLANLABS-2010S1018312

PATIENT
  Age: 52 Year
  Sex: Female
  Weight: 113.4 kg

DRUGS (15)
  1. ETODOLAC [Concomitant]
  2. METFORMIN HCL [Concomitant]
  3. LYRICA [Concomitant]
  4. CARBIDOPA AND LEVODOPA [Concomitant]
  5. SKELAXIN [Concomitant]
  6. VOLTAREN [Concomitant]
     Route: 061
  7. NEXIUM [Concomitant]
  8. ALPRAZOLAM [Concomitant]
     Dosage: ONCE OR TWICE DAILY
  9. ASPIRIN [Concomitant]
  10. HYDROCODONE BITARTRATE AND ACETAMINOPHEN [Concomitant]
  11. HYZAAR [Concomitant]
  12. IMIPRAMINE HCL [Concomitant]
  13. FENTANYL-100 [Suspect]
     Indication: PAIN
     Dosage: CHANGE Q3D
     Route: 062
     Dates: start: 20080601, end: 20080611
  14. TRAMADOL HCL [Concomitant]
  15. OXYCODONE AND ACETAMINOPHEN [Concomitant]

REACTIONS (2)
  - TOXICITY TO VARIOUS AGENTS [None]
  - OVERDOSE [None]
